FAERS Safety Report 25797507 (Version 1)
Quarter: 2025Q3

REPORT INFORMATION
  Report Type: Spontaneous
  Country: US (occurrence: None)
  Receive Date: 20250912
  Receipt Date: 20250912
  Transmission Date: 20251020
  Serious: Yes (Life-Threatening, Hospitalization)
  Sender: FDA-CTU
  Company Number: None

PATIENT
  Age: 27 Year
  Sex: Female
  Weight: 54 kg

DRUGS (2)
  1. VYEPTI [Suspect]
     Active Substance: EPTINEZUMAB-JJMR
     Indication: Migraine
     Route: 042
     Dates: start: 20250910, end: 20250911
  2. none ordered [Concomitant]

REACTIONS (7)
  - Discomfort [None]
  - Head discomfort [None]
  - Cough [None]
  - Infusion related reaction [None]
  - Pruritus [None]
  - Obstructive airways disorder [None]
  - Dyspnoea [None]

NARRATIVE: CASE EVENT DATE: 20250910
